FAERS Safety Report 12491528 (Version 1)
Quarter: 2016Q2

REPORT INFORMATION
  Report Type: Report from Study
  Country: BR (occurrence: BR)
  Receive Date: 20160623
  Receipt Date: 20160623
  Transmission Date: 20160815
  Serious: Yes (Other)
  Sender: FDA-Public Use
  Company Number: PHHY2014BR119221

PATIENT
  Sex: Female
  Weight: 67 kg

DRUGS (4)
  1. SIMVASTATINA [Concomitant]
     Active Substance: SIMVASTATIN
     Indication: BLOOD CHOLESTEROL ABNORMAL
     Dosage: 1 DF, QD
     Route: 065
     Dates: start: 2014
  2. ACLASTA [Suspect]
     Active Substance: ZOLEDRONIC ACID
     Indication: FRACTURE
     Dosage: 5 MG, Q12MO
     Route: 042
     Dates: start: 201506
  3. ACLASTA [Suspect]
     Active Substance: ZOLEDRONIC ACID
     Indication: OSTEOPENIA
     Dosage: 5 MG, Q12MO
     Route: 042
     Dates: start: 20140826
  4. ARADOIS [Concomitant]
     Active Substance: LOSARTAN POTASSIUM
     Indication: HYPERTENSION
     Dosage: 1 DF, QD
     Route: 065

REACTIONS (11)
  - Pain [Not Recovered/Not Resolved]
  - Abdominal pain upper [Unknown]
  - Bone pain [Unknown]
  - Eating disorder [Unknown]
  - Gastritis [Unknown]
  - Inappropriate schedule of drug administration [Unknown]
  - Malaise [Unknown]
  - Anxiety [Unknown]
  - Body height decreased [Unknown]
  - Confusional state [Unknown]
  - Helicobacter infection [Unknown]
